FAERS Safety Report 11895580 (Version 3)
Quarter: 2017Q1

REPORT INFORMATION
  Report Type: Spontaneous
  Country: US (occurrence: US)
  Receive Date: 20160107
  Receipt Date: 20170316
  Transmission Date: 20170428
  Serious: No
  Sender: FDA-Public Use
  Company Number: US-CELGENEUS-USA-2016010570

PATIENT
  Age: 27 Year
  Sex: Male

DRUGS (3)
  1. AMOXICILLIN. [Suspect]
     Active Substance: AMOXICILLIN
     Indication: SINUSITIS
     Route: 065
  2. OTEZLA [Suspect]
     Active Substance: APREMILAST
     Dosage: 10MG-20MG-30MG
     Route: 048
     Dates: start: 20150223
  3. OTEZLA [Suspect]
     Active Substance: APREMILAST
     Indication: PSORIASIS
     Dosage: 60 MILLIGRAM
     Route: 048
     Dates: start: 20150409, end: 20151221

REACTIONS (3)
  - Sinusitis [Unknown]
  - Adverse drug reaction [Unknown]
  - Nausea [Unknown]

NARRATIVE: CASE EVENT DATE: 20151221
